FAERS Safety Report 23989582 (Version 1)
Quarter: 2024Q2

REPORT INFORMATION
  Report Type: Spontaneous
  Country: PL (occurrence: PL)
  Receive Date: 20240619
  Receipt Date: 20240619
  Transmission Date: 20240716
  Serious: Yes (Hospitalization, Other)
  Sender: FDA-Public Use
  Company Number: PL-CELLTRION INC.-2024PL014651

PATIENT

DRUGS (2)
  1. INFLIXIMAB [Suspect]
     Active Substance: INFLIXIMAB
     Indication: Rheumatoid arthritis
     Dosage: 50 MG
     Route: 042
     Dates: start: 20181113, end: 20181126
  2. METOTREKSAT ACCORD [Concomitant]
     Indication: Rheumatoid arthritis
     Dosage: THE PATIENT HAS BEEN ON CHRONIC THERAPY FOR SEVERAL YEARS

REACTIONS (3)
  - Asthenia [Recovering/Resolving]
  - Immunosuppression [Recovering/Resolving]
  - Urosepsis [Recovering/Resolving]

NARRATIVE: CASE EVENT DATE: 20181205
